FAERS Safety Report 23336060 (Version 2)
Quarter: 2024Q1

REPORT INFORMATION
  Report Type: Report from Study
  Country: RU (occurrence: RU)
  Receive Date: 20231225
  Receipt Date: 20240130
  Transmission Date: 20240410
  Serious: Yes (Other)
  Sender: FDA-Public Use
  Company Number: RU-002147023-NVSC2023RU272081

PATIENT
  Age: 65 Year
  Sex: Female

DRUGS (6)
  1. DABRAFENIB [Suspect]
     Active Substance: DABRAFENIB
     Indication: Malignant melanoma
     Dosage: 150 MG, BID (300 MG)
     Route: 048
     Dates: start: 20180609, end: 201901
  2. DABRAFENIB [Suspect]
     Active Substance: DABRAFENIB
     Dosage: 225 MG, QD (150 MG, CAPSULES)
     Route: 048
     Dates: start: 201901, end: 201902
  3. DABRAFENIB [Suspect]
     Active Substance: DABRAFENIB
     Dosage: 225 MG, (INITIATED IN APRIL)
     Route: 065
  4. DABRAFENIB [Suspect]
     Active Substance: DABRAFENIB
     Dosage: UNK, (THE THERAPY WAS RESUMED IN FULL DOSE)
     Route: 065
     Dates: start: 201910
  5. TRAMETINIB [Suspect]
     Active Substance: TRAMETINIB
     Indication: Malignant melanoma
     Dosage: 2 MG, QD
     Route: 048
     Dates: start: 20180609, end: 201902
  6. TRAMETINIB [Suspect]
     Active Substance: TRAMETINIB
     Dosage: UNK, (THE THERAPY WAS RESUMED IN FULL DOSE)
     Route: 065
     Dates: start: 201910

REACTIONS (1)
  - Hepatotoxicity [Recovering/Resolving]

NARRATIVE: CASE EVENT DATE: 20190114
